FAERS Safety Report 4395381-1 (Version None)
Quarter: 2004Q3

REPORT INFORMATION
  Report Type: 
  Country: None (occurrence: None)
  Receive Date: 20040712
  Receipt Date: 20040712
  Transmission Date: 20050211
  Serious: Yes (Other)
  Sender: FDA-Public Use
  Company Number: None

PATIENT
  Sex: Female
  Weight: 77.1115 kg

DRUGS (26)
  1. VENOGLOBULIN-S [Suspect]
     Indication: HYPOGAMMAGLOBULINAEMIA
     Dosage: 15 GM IV MONTHLY
     Route: 042
     Dates: start: 20030919
  2. VENOGLOBULIN-S [Suspect]
     Dosage: 10 GM
     Dates: start: 20030619
  3. VENOGLOBULIN-S [Suspect]
     Dosage: 10 GM
     Dates: start: 20030721
  4. VENOGLOBULIN-S [Suspect]
     Dosage: 10 GM
     Dates: start: 20031107
  5. VENOGLOBULIN-S [Suspect]
     Dosage: 10 GM
     Dates: start: 20040416
  6. VENOGLOBULIN-S [Suspect]
     Dosage: 10 GM
     Dates: start: 20040513
  7. VENOGLOBULIN-S [Suspect]
     Dosage: 5 GM
     Dates: start: 20030721
  8. VENOGLOBULIN-S [Suspect]
     Dosage: 5 GM
     Dates: start: 20030818
  9. VENOGLOBULIN-S [Suspect]
     Dosage: 5 GM
     Dates: start: 20030915
  10. VENOGLOBULIN-S [Suspect]
     Dosage: 5 GM
     Dates: start: 20031107
  11. VENOGLOBULIN-S [Suspect]
     Dosage: 10 GM
     Dates: start: 20030818
  12. VENOGLOBULIN-S [Suspect]
     Dosage: 10 GM
     Dates: start: 20030915
  13. VENOGLOBULIN-S [Suspect]
     Dosage: 10 GM
     Dates: start: 20040226
  14. VENOGLOBULIN-S [Suspect]
     Dates: start: 20031204
  15. VENOGLOBULIN-S [Suspect]
     Dates: start: 20031229
  16. VENOGLOBULIN-S [Suspect]
     Dates: start: 20040129
  17. VENOGLOBULIN-S [Suspect]
     Dates: start: 20040513
  18. VENOGLOBULIN-S [Suspect]
     Dates: start: 20030129
  19. VENOGLOBULIN-S [Suspect]
     Dates: start: 20031204
  20. VENOGLOBULIN-S [Suspect]
     Dates: start: 20031229
  21. VENOGLOBULIN-S [Suspect]
     Dates: start: 20040303
  22. VENOGLOBULIN-S [Suspect]
     Dates: start: 20040607
  23. VENOGLOBULIN-S [Suspect]
     Dates: start: 20040226
  24. VENOGLOBULIN-S [Suspect]
     Dates: start: 20040330
  25. VENOGLOBULIN-S [Suspect]
     Dates: start: 20040416
  26. VENOGLOBULIN-S [Suspect]
     Dates: start: 20040607

REACTIONS (2)
  - HEPATITIS B ANTIBODY POSITIVE [None]
  - INDIRECT INFECTION TRANSMISSION [None]
